FAERS Safety Report 7537814-5 (Version None)
Quarter: 2011Q2

REPORT INFORMATION
  Report Type: 
  Country: None (occurrence: None)
  Receive Date: 20110609
  Receipt Date: 20110531
  Transmission Date: 20111010
  Serious: Yes (Hospitalization)
  Sender: FDA-Public Use
  Company Number: DE-BAXTER-2010BH030695

PATIENT
  Age: 75 Year
  Sex: Female
  Weight: 80 kg

DRUGS (8)
  1. EXTRANEAL [Suspect]
     Route: 033
     Dates: end: 20101222
  2. NUTRINEAL [Suspect]
     Indication: PERITONEAL DIALYSIS
     Route: 033
     Dates: end: 20101215
  3. EXTRANEAL [Suspect]
     Indication: PERITONEAL DIALYSIS
     Route: 033
     Dates: end: 20101222
  4. EXTRANEAL [Suspect]
     Route: 033
     Dates: end: 20101222
  5. PHYSIOSOL IN PLASTIC CONTAINER [Suspect]
     Indication: PERITONEAL DIALYSIS
     Route: 033
  6. EXTRANEAL [Suspect]
     Route: 033
     Dates: end: 20101222
  7. PHYSIOSOL IN PLASTIC CONTAINER [Suspect]
     Route: 033
  8. NUTRINEAL [Suspect]
     Route: 033
     Dates: end: 20101215

REACTIONS (11)
  - PERITONITIS BACTERIAL [None]
  - BLOOD PRESSURE INCREASED [None]
  - GASTROINTESTINAL HYPOMOTILITY [None]
  - GENERAL PHYSICAL HEALTH DETERIORATION [None]
  - CONSTIPATION [None]
  - OEDEMA PERIPHERAL [None]
  - PERITONEAL DIALYSIS COMPLICATION [None]
  - ABDOMINAL DISTENSION [None]
  - PYREXIA [None]
  - CARDIAC MURMUR [None]
  - MALAISE [None]
